FAERS Safety Report 11123389 (Version 19)
Quarter: 2019Q2

REPORT INFORMATION
  Report Type: Report from Study
  Country: CA (occurrence: CA)
  Receive Date: 20150519
  Receipt Date: 20190408
  Transmission Date: 20190711
  Serious: Yes (Life-Threatening, Hospitalization, Other)
  Sender: FDA-Public Use
  Company Number: PHHY2015CA005567

PATIENT
  Age: 50 Year
  Sex: Female

DRUGS (5)
  1. PRAZOSIN. [Concomitant]
     Active Substance: PRAZOSIN
     Indication: PRODUCT USED FOR UNKNOWN INDICATION
     Dosage: 2 MG, (5 TIMES PER DAY)
     Route: 065
  2. SYNTHROID [Concomitant]
     Active Substance: LEVOTHYROXINE SODIUM
     Indication: PRODUCT USED FOR UNKNOWN INDICATION
     Route: 065
  3. SERTRALINE [Concomitant]
     Active Substance: SERTRALINE HYDROCHLORIDE
     Indication: PRODUCT USED FOR UNKNOWN INDICATION
     Dosage: 100 MG, (EVERY MORNING)
     Route: 065
  4. SANDOSTATIN LAR DEPOT [Suspect]
     Active Substance: OCTREOTIDE ACETATE
     Indication: ACROMEGALY
     Dosage: 20 MG, QMO (ONCE A MONTH)
     Route: 030
     Dates: start: 20141202
  5. TRAZODONE [Concomitant]
     Active Substance: TRAZODONE HYDROCHLORIDE
     Indication: PRODUCT USED FOR UNKNOWN INDICATION
     Dosage: 50 MG, QHS
     Route: 065

REACTIONS (41)
  - Suicide attempt [Unknown]
  - Seizure [Unknown]
  - Thyroid neoplasm [Unknown]
  - Dysphagia [Unknown]
  - Aortic disorder [Unknown]
  - Myocardial infarction [Unknown]
  - Blood pressure systolic increased [Unknown]
  - General physical health deterioration [Unknown]
  - Concussion [Unknown]
  - Nasal cavity mass [Unknown]
  - Oedema peripheral [Recovering/Resolving]
  - Wound [Recovered/Resolved]
  - Feeling abnormal [Unknown]
  - Hypokinesia [Unknown]
  - Asthenia [Unknown]
  - Nasal neoplasm [Unknown]
  - Visual impairment [Unknown]
  - Frustration tolerance decreased [Unknown]
  - Dyspnoea [Unknown]
  - Migraine [Unknown]
  - Heart rate decreased [Unknown]
  - Adrenal neoplasm [Unknown]
  - Blood pressure increased [Not Recovered/Not Resolved]
  - Body temperature decreased [Unknown]
  - Fear of falling [Unknown]
  - Weight increased [Unknown]
  - Atrioventricular block [Unknown]
  - Rhinorrhoea [Unknown]
  - Chest discomfort [Unknown]
  - Loss of consciousness [Unknown]
  - Fall [Unknown]
  - Mental disorder [Unknown]
  - Spinal pain [Unknown]
  - Gait disturbance [Unknown]
  - Fatigue [Unknown]
  - Mobility decreased [Unknown]
  - Paranasal sinus neoplasm [Not Recovered/Not Resolved]
  - Depression [Unknown]
  - Anxiety [Not Recovered/Not Resolved]
  - Back pain [Recovering/Resolving]
  - Diarrhoea [Unknown]

NARRATIVE: CASE EVENT DATE: 20150115
